FAERS Safety Report 6918633-7 (Version None)
Quarter: 2010Q3

REPORT INFORMATION
  Report Type: 
  Country: None (occurrence: None)
  Receive Date: 20100811
  Receipt Date: 20100805
  Transmission Date: 20110219
  Serious: Yes (Other)
  Sender: FDA-Public Use
  Company Number: US-PFIZER INC-2009303685

PATIENT
  Sex: Male

DRUGS (2)
  1. CELEBREX [Suspect]
     Dosage: UNK
  2. COZAAR [Concomitant]
     Indication: HYPERTENSION
     Dosage: UNK

REACTIONS (2)
  - BLOOD CREATININE INCREASED [None]
  - SPINAL OPERATION [None]
